FAERS Safety Report 6910889-X (Version None)
Quarter: 2010Q3

REPORT INFORMATION
  Report Type: 
  Country: None (occurrence: None)
  Receive Date: 20100806
  Receipt Date: 20100727
  Transmission Date: 20110219
  Serious: Yes (Other)
  Sender: FDA-Public Use
  Company Number: BR-PFIZER INC-2010083836

PATIENT
  Age: 59 Year
  Sex: Female
  Weight: 47 kg

DRUGS (5)
  1. CHAMPIX [Suspect]
     Indication: TOBACCO USER
     Dosage: UNK
     Route: 048
     Dates: start: 20050101, end: 20050101
  2. CHAMPIX [Suspect]
     Dosage: UNK
     Dates: start: 20100704
  3. ARAVA [Concomitant]
     Indication: MUSCULOSKELETAL PAIN
     Dosage: UNK
     Dates: start: 20050101, end: 20100701
  4. LEXOTAN [Concomitant]
     Dosage: UNK
     Dates: start: 20050101, end: 20100401
  5. CLONAZEPAM [Concomitant]
     Indication: INSOMNIA
     Dosage: AT NIGHT
     Dates: start: 20100101

REACTIONS (3)
  - AGITATION [None]
  - NERVOUSNESS [None]
  - RETCHING [None]
